FAERS Safety Report 5206413-2 (Version None)
Quarter: 2007Q1

REPORT INFORMATION
  Report Type: 
  Country: None (occurrence: None)
  Receive Date: 20070111
  Receipt Date: 20070104
  Transmission Date: 20070707
  Serious: Yes (Hospitalization, Other)
  Sender: FDA-Public Use
  Company Number: US-PFIZER INC-2006115369

PATIENT
  Age: 55 Year
  Sex: Female

DRUGS (10)
  1. SOLU-MEDROL [Suspect]
     Indication: PRIMARY PROGRESSIVE MULTIPLE SCLEROSIS
     Route: 042
     Dates: start: 20041001, end: 20051001
  2. SYNTHROID [Concomitant]
     Route: 065
  3. RALOXIFENE HCL [Concomitant]
     Route: 065
     Dates: start: 20050101
  4. BEXTRA [Concomitant]
     Route: 065
     Dates: start: 20050101
  5. ZOLOFT [Concomitant]
     Route: 065
     Dates: start: 20050101
  6. CLONOPIN [Concomitant]
     Route: 065
     Dates: start: 20050101
  7. ELAVIL [Concomitant]
     Route: 065
     Dates: start: 20050101
  8. ULTRAM [Concomitant]
     Route: 065
     Dates: start: 20050101
  9. BACLOFEN [Concomitant]
     Route: 065
     Dates: start: 20050101
  10. ESTRACE [Concomitant]

REACTIONS (3)
  - HEPATIC NECROSIS [None]
  - HEPATOTOXICITY [None]
  - IDIOSYNCRATIC DRUG REACTION [None]
